FAERS Safety Report 13515872 (Version 1)
Quarter: 2017Q2

REPORT INFORMATION
  Report Type: Other
  Country: GB (occurrence: GB)
  Receive Date: 20170505
  Receipt Date: 20170505
  Transmission Date: 20170830
  Serious: Yes (Disabling)
  Sender: FDA-Public Use
  Company Number: GB-LUPIN PHARMACEUTICALS INC.-E2B_00007440

PATIENT
  Sex: Female

DRUGS (3)
  1. RISPERIDONE. [Suspect]
     Active Substance: RISPERIDONE
     Indication: MENTAL DISORDER
     Dosage: .25 MG,UNK,UNKNOWN
     Route: 048
     Dates: start: 20170104, end: 20170117
  2. RISPERIDONE. [Suspect]
     Active Substance: RISPERIDONE
     Dosage: .5 MG,UNK,UNKNOWN
     Route: 048
     Dates: start: 20170117, end: 20170124
  3. MEMANTINE. [Suspect]
     Active Substance: MEMANTINE
     Indication: DEMENTIA ALZHEIMER^S TYPE
     Dosage: 10 MG,QD,
     Route: 048
     Dates: start: 20170117, end: 20170124

REACTIONS (2)
  - Somnolence [Recovered/Resolved]
  - Confusional state [Recovered/Resolved]

NARRATIVE: CASE EVENT DATE: 20170119
